FAERS Safety Report 10273346 (Version 1)
Quarter: 2014Q1

REPORT INFORMATION
  Report Type: Spontaneous
  Country: US (occurrence: None)
  Receive Date: 20140306
  Receipt Date: 20140306
  Transmission Date: 20141002
  Serious: Yes (Hospitalization)
  Sender: FDA-Public Use
  Company Number: 163-21880-13021145

PATIENT
  Age: 75 Year
  Sex: Female
  Weight: 87.7 kg

DRUGS (25)
  1. REVLIMID [Suspect]
     Indication: PLASMA CELL MYELOMA
     Route: 048
     Dates: start: 20120507
  2. ELOTUZUMAB [Suspect]
     Indication: PLASMA CELL MYELOMA
     Route: 042
     Dates: start: 20120507
  3. DEXAMETHASONE (DEXAMETHASONE) [Suspect]
     Indication: PLASMA CELL MYELOMA
     Route: 048
     Dates: start: 20120507
  4. HYDROCORTISONE (HYDROCORTISONE) (CREAM) [Concomitant]
  5. AZITHROMYCIN (AZITHROMYCIN) [Concomitant]
  6. ZOLEDRONIC ACID (ZOLEDRONIC ACID) [Concomitant]
  7. OMEPRAZOLE (OMEPRAZOLE) [Concomitant]
  8. OXYCODONE (OXYCODONE) [Concomitant]
  9. POTASSIUM CHLORIDE (POTASSIUM CHLORIDE) [Concomitant]
  10. GABAPENTIN (GABAPENTIN) [Concomitant]
  11. ATORVASTATIN (ATORVASTATIN) [Concomitant]
  12. HYDROCHLOROTHIAZIDE (HYDROCHLOROTHIAZIDE) [Concomitant]
  13. FOLIC ACID (FOLIC ACID) [Concomitant]
  14. FLORINEF ACETATE (FLUDROCORTISONE ACETATE) [Concomitant]
  15. FLAXSEED (LINUM USITATISSIMUM SEED) [Concomitant]
  16. FISH OIL (FISH OIL) (CAPSULES) [Concomitant]
  17. MULTIVITAMINS (MULTIVITAMINS) [Concomitant]
  18. CALCIUM WITH VITAMIN D (CALCIUM WITH VITAMIN D) [Concomitant]
  19. ASPIRIN (ACETYLSALICYLIC ACID) [Concomitant]
  20. ACYCLOVIR (ACICLOVIR) [Concomitant]
  21. PREDNISONE (PREDNISONE) [Concomitant]
  22. BACTRIM DS (BACTRIM) [Concomitant]
  23. KEFLEX (CEFALEXIN MONOHYDRATE) [Concomitant]
  24. KETOTIFEN FUMARATE (KETOTIFEN FUMARATE) [Concomitant]
  25. AUGMERNTIN (CLAVULIN) [Concomitant]

REACTIONS (3)
  - Deep vein thrombosis [None]
  - Muscular weakness [None]
  - Atypical pneumonia [None]
